FAERS Safety Report 4984997-7 (Version None)
Quarter: 2006Q2

REPORT INFORMATION
  Report Type: 
  Country: None (occurrence: None)
  Receive Date: 20060426
  Receipt Date: 20060426
  Transmission Date: 20061013
  Serious: Yes (Hospitalization, Other)
  Sender: FDA-Public Use
  Company Number: None

PATIENT
  Age: 57 Year
  Sex: Female
  Weight: 183 kg

DRUGS (1)
  1. CORICIDIN D TABLETS [Suspect]
     Dosage: ORAL
     Route: 048
     Dates: start: 19960913, end: 19960917

REACTIONS (7)
  - BLOOD PRESSURE INCREASED [None]
  - GASTROENTERITIS VIRAL [None]
  - HAEMORRHAGIC STROKE [None]
  - INFLUENZA [None]
  - ISCHAEMIC STROKE [None]
  - LABYRINTHITIS [None]
  - TRANSIENT ISCHAEMIC ATTACK [None]
